FAERS Safety Report 4533255-3 (Version None)
Quarter: 2004Q4

REPORT INFORMATION
  Report Type: 
  Country: None (occurrence: None)
  Receive Date: 20041210
  Receipt Date: 20040809
  Transmission Date: 20050328
  Serious: Yes (Other)
  Sender: FDA-Public Use
  Company Number: A03200402666

PATIENT
  Age: 68 Year
  Sex: Female
  Weight: 55.112 kg

DRUGS (6)
  1. ELOXATIN [Suspect]
     Indication: COLORECTAL CANCER
     Dosage: 160 MG OTHER - INTRAVENOUS NOS
     Route: 042
     Dates: start: 20040809, end: 20040809
  2. ELOXATIN [Suspect]
     Indication: METASTASES TO LIVER
     Dosage: 160 MG OTHER - INTRAVENOUS NOS
     Route: 042
     Dates: start: 20040809, end: 20040809
  3. FLUOROURACIL [Concomitant]
  4. LEUCOVORIN [Concomitant]
  5. DEXAMETHASONE [Concomitant]
  6. ONDANSETRON HYDROCHLORIDE [Concomitant]

REACTIONS (5)
  - ATAXIA [None]
  - DIPLOPIA [None]
  - DIZZINESS [None]
  - DYSARTHRIA [None]
  - SWOLLEN TONGUE [None]
